FAERS Safety Report 15005747 (Version 1)
Quarter: 2018Q2

REPORT INFORMATION
  Report Type: Spontaneous
  Country: BE (occurrence: BE)
  Receive Date: 20180613
  Receipt Date: 20180613
  Transmission Date: 20180711
  Serious: Yes (Other)
  Sender: FDA-Public Use
  Company Number: BE-NOVOPROD-604288

PATIENT
  Age: 50 Year
  Sex: Female
  Weight: 73 kg

DRUGS (2)
  1. OESTROGEL [Concomitant]
     Active Substance: ESTRADIOL
     Indication: MENOPAUSE
     Dosage: 20 DAYS A MONTH
     Route: 062
     Dates: start: 2010
  2. NORDITROPIN [Suspect]
     Active Substance: SOMATROPIN
     Indication: PRODUCT USED FOR UNKNOWN INDICATION
     Dosage: 2 CLICKS A DAY
     Route: 030
     Dates: start: 2008

REACTIONS (6)
  - Swelling face [Unknown]
  - Headache [Unknown]
  - Unresponsive to stimuli [Unknown]
  - Peripheral swelling [Unknown]
  - Product quality issue [Unknown]
  - Eye swelling [Unknown]

NARRATIVE: CASE EVENT DATE: 20180526
